FAERS Safety Report 8576518-7 (Version None)
Quarter: 2012Q3

REPORT INFORMATION
  Report Type: 
  Country: None (occurrence: None)
  Receive Date: 20120807
  Receipt Date: 20120725
  Transmission Date: 20120928
  Serious: Yes (Other)
  Sender: FDA-Public Use
  Company Number: AU-ROCHE-1088296

PATIENT
  Sex: Female

DRUGS (14)
  1. BUPRENORPHINE [Concomitant]
  2. RABEPRAZOLE SODIUM [Concomitant]
  3. BUPRENORPHINE [Concomitant]
  4. FOLIC ACID [Concomitant]
  5. ACETAMINOPHEN [Concomitant]
  6. ACTEMRA [Suspect]
     Indication: RHEUMATOID ARTHRITIS
     Route: 042
     Dates: start: 20120323, end: 20120323
  7. MONOPLUS [Concomitant]
     Dosage: 20/1.5 MG
  8. PREDNISOLONE [Concomitant]
  9. VENTOLIN [Concomitant]
  10. ASPIRIN [Concomitant]
  11. SYMBICORT [Concomitant]
     Dosage: 200MCG/ 6MCG
  12. OXYCODONE HCL [Concomitant]
  13. PLAQUENIL [Concomitant]
  14. METHOTREXATE [Concomitant]

REACTIONS (6)
  - DYSPNOEA EXERTIONAL [None]
  - WEIGHT INCREASED [None]
  - NAUSEA [None]
  - OEDEMA PERIPHERAL [None]
  - ILL-DEFINED DISORDER [None]
  - HERPES ZOSTER [None]
